FAERS Safety Report 17434949 (Version 2)
Quarter: 2021Q1

REPORT INFORMATION
  Report Type: Spontaneous
  Country: US (occurrence: US)
  Receive Date: 20200219
  Receipt Date: 20210119
  Transmission Date: 20210419
  Serious: Yes (Other)
  Sender: FDA-Public Use
  Company Number: US-PFIZER INC-2020073603

PATIENT
  Age: 45 Year

DRUGS (1)
  1. NEURONTIN [Suspect]
     Active Substance: GABAPENTIN
     Indication: EPILEPSY
     Dosage: UNK
     Dates: start: 1999

REACTIONS (8)
  - Drug dependence [Unknown]
  - Drug hypersensitivity [Unknown]
  - Drug intolerance [Unknown]
  - Road traffic accident [Unknown]
  - Asthma [Unknown]
  - Skin laceration [Unknown]
  - Anaphylactic reaction [Unknown]
  - Impaired driving ability [Unknown]
